FAERS Safety Report 10968655 (Version 1)
Quarter: 2015Q1

REPORT INFORMATION
  Report Type: Report from Study
  Country: IL (occurrence: IL)
  Receive Date: 20150330
  Receipt Date: 20150330
  Transmission Date: 20150721
  Serious: Yes (Hospitalization)
  Sender: FDA-Public Use
  Company Number: PHHO2013IL011171

PATIENT
  Age: 27 Year
  Sex: Male
  Weight: 76 kg

DRUGS (3)
  1. AIN457 [Suspect]
     Active Substance: SECUKINUMAB
     Indication: PSORIASIS
     Dosage: DOSE BLINDED
     Route: 058
     Dates: start: 20121111, end: 20130923
  2. METHOTREXATE [Concomitant]
     Active Substance: METHOTREXATE
  3. NON-DRUG: PHOTOTHERAPY [Concomitant]

REACTIONS (2)
  - Rash papular [Recovering/Resolving]
  - Drug eruption [Recovering/Resolving]

NARRATIVE: CASE EVENT DATE: 20130825
